FAERS Safety Report 6368567-4 (Version None)
Quarter: 2009Q3

REPORT INFORMATION
  Report Type: 
  Country: None (occurrence: None)
  Receive Date: 20090922
  Receipt Date: 20081217
  Transmission Date: 20100115
  Serious: No
  Sender: FDA-Public Use
  Company Number: US-BRISTOL-MYERS SQUIBB COMPANY-14447072

PATIENT
  Age: 24 Year
  Sex: Female
  Weight: 60 kg

DRUGS (3)
  1. BUSPAR [Suspect]
     Indication: ANXIETY DISORDER
     Dates: start: 20080903
  2. ABILIFY [Suspect]
     Dates: start: 20081201, end: 20081201
  3. SEROQUEL [Concomitant]

REACTIONS (4)
  - HOT FLUSH [None]
  - THROAT TIGHTNESS [None]
  - TREMOR [None]
  - VOMITING [None]
